FAERS Safety Report 6697071-9 (Version None)
Quarter: 2010Q2

REPORT INFORMATION
  Report Type: 
  Country: None (occurrence: None)
  Receive Date: 20100422
  Receipt Date: 20100422
  Transmission Date: 20101027
  Serious: Yes (Hospitalization)
  Sender: FDA-Public Use
  Company Number: 2010AL002248

PATIENT
  Age: 64 Year
  Sex: Female

DRUGS (4)
  1. NAPROXEN [Suspect]
     Indication: SCIATICA
     Dosage: 500 MG;BID;PO PUREPAC
     Route: 048
     Dates: start: 20091001, end: 20100322
  2. LANSOPRAZOLE [Concomitant]
  3. CALCICHEW D3 [Concomitant]
  4. ACETAMINOPHEN AND CODEINE PHOSPHATE [Concomitant]

REACTIONS (4)
  - ASTHENIA [None]
  - DYSPNOEA [None]
  - HAEMOGLOBIN DECREASED [None]
  - MELAENA [None]
